FAERS Safety Report 25805500 (Version 3)
Quarter: 2025Q3

REPORT INFORMATION
  Report Type: Spontaneous
  Country: US (occurrence: US)
  Receive Date: 20250916
  Receipt Date: 20250923
  Transmission Date: 20251021
  Serious: No
  Sender: LUPIN
  Company Number: US-LUPIN PHARMACEUTICALS INC.-2025-08144

PATIENT
  Age: 70 Year

DRUGS (2)
  1. BUPROPION HYDROCHLORIDE [Suspect]
     Active Substance: BUPROPION HYDROCHLORIDE
     Indication: Product used for unknown indication
     Route: 065
  2. BUPROPION HYDROCHLORIDE [Suspect]
     Active Substance: BUPROPION HYDROCHLORIDE
     Route: 065

REACTIONS (7)
  - Nausea [Unknown]
  - Headache [Unknown]
  - Somnolence [Unknown]
  - Malaise [Unknown]
  - Depressive symptom [Unknown]
  - Product substitution issue [Unknown]
  - Product quality issue [Unknown]
